FAERS Safety Report 5983554-3 (Version None)
Quarter: 2008Q4

REPORT INFORMATION
  Report Type: 
  Country: None (occurrence: None)
  Receive Date: 20081208
  Receipt Date: 20081124
  Transmission Date: 20090506
  Serious: Yes (Other)
  Sender: FDA-Public Use
  Company Number: US-ROCHE-574561

PATIENT
  Age: 37 Year
  Sex: Female

DRUGS (1)
  1. XELODA [Suspect]
     Indication: BREAST CANCER
     Dosage: DOSAGE REGIMEN REPORTED AS: 1500 MG IN MORNING AND 1000 MG IN EVENING.
     Route: 065
     Dates: start: 20080627, end: 20080704

REACTIONS (1)
  - ABORTION SPONTANEOUS [None]
